FAERS Safety Report 5642685-8 (Version None)
Quarter: 2008Q1

REPORT INFORMATION
  Report Type: 
  Country: None (occurrence: None)
  Receive Date: 20080228
  Receipt Date: 20080221
  Transmission Date: 20080703
  Serious: Yes (Other)
  Sender: FDA-Public Use
  Company Number: CH-BAYER-200813614GPV

PATIENT
  Age: 79 Year
  Sex: Female
  Weight: 75 kg

DRUGS (6)
  1. ASPIRIN [Suspect]
     Indication: HEADACHE
     Dosage: UNIT DOSE: 500 MG
     Route: 048
     Dates: start: 20080127, end: 20080127
  2. COVERSUM COMBI / INDAPAMIDE, PERINDOPRIL ERBUMINE [Suspect]
     Indication: HYPERTENSION
     Route: 048
     Dates: start: 20050101, end: 20080127
  3. AMLO ECO / AMLODIPINE MALEATE [Concomitant]
     Indication: DRUG USE FOR UNKNOWN INDICATION
     Dosage: UNIT DOSE: 5 MG
     Route: 048
     Dates: start: 20070101
  4. SOTALOL MEPHA / SOTALOL HYDROCHLORIDE [Concomitant]
     Indication: DRUG USE FOR UNKNOWN INDICATION
     Dosage: TOTAL DAILY DOSE: 320 MG  UNIT DOSE: 160 MG
     Route: 048
     Dates: start: 19970101
  5. TAMOXIFEN CITRATE [Concomitant]
     Indication: DRUG USE FOR UNKNOWN INDICATION
     Dosage: UNIT DOSE: 10 MG
     Route: 048
     Dates: start: 20030101
  6. NOVALGIN / METAMIZOLE SODIUM MONOHYDRATE [Concomitant]
     Indication: DRUG USE FOR UNKNOWN INDICATION
     Dosage: UNIT DOSE: 1000 MG
     Route: 048
     Dates: start: 20060101

REACTIONS (3)
  - HYPERSENSITIVITY [None]
  - PRURITUS [None]
  - TONGUE OEDEMA [None]
